FAERS Safety Report 24879036 (Version 1)
Quarter: 2025Q1

REPORT INFORMATION
  Report Type: Spontaneous
  Country: US (occurrence: US)
  Receive Date: 20250123
  Receipt Date: 20250123
  Transmission Date: 20250408
  Serious: No
  Sender: CATALYST PHARMA
  Company Number: US-CATALYST PHARMACEUTICALS, INC-US-CATA-24-00408

PATIENT
  Age: 53 Year
  Sex: Male
  Weight: 65.76 kg

DRUGS (12)
  1. FIRDAPSE [Suspect]
     Active Substance: AMIFAMPRIDINE PHOSPHATE
     Indication: Myasthenic syndrome
     Dosage: 1/2 TABLET FOUR TIMES A DAY FOR FOUR DAYS, THEN INCREASE BY 1/2 TABLET EVERY 3 DAYS TO A MAX DOSE OF
     Route: 048
     Dates: start: 20240415, end: 2024
  2. FIRDAPSE [Suspect]
     Active Substance: AMIFAMPRIDINE PHOSPHATE
     Dosage: 6 TABLETS DAILY
     Route: 048
     Dates: start: 2024, end: 2024
  3. VITAMINS [Concomitant]
     Active Substance: VITAMINS
     Indication: Hypovitaminosis
     Dosage: DAILY
     Route: 065
  4. VITAMIN C [Concomitant]
     Active Substance: ASCORBIC ACID
     Indication: Hypovitaminosis
     Dosage: 1000 MG DAILY
     Route: 065
  5. PEPCID [Concomitant]
     Active Substance: FAMOTIDINE
     Indication: Gastrooesophageal reflux disease
     Route: 065
  6. FAMOTIDINE [Concomitant]
     Active Substance: FAMOTIDINE
     Indication: Gastrooesophageal reflux disease
     Route: 065
  7. ZINC PICOLINATE [Suspect]
     Active Substance: ZINC PICOLINATE
     Indication: Hypovitaminosis
     Dosage: 30 MG DAILY
     Route: 065
  8. B COMPLEX WITH FOLIC ACID [Concomitant]
     Indication: Hypovitaminosis
     Dosage: 1 TABLET DAILY
     Route: 065
  9. COENZYME Q10 [Concomitant]
     Active Substance: DIETARY SUPPLEMENT\UBIDECARENONE
     Indication: Dyslipidaemia
     Route: 065
  10. QUERCETIN [Concomitant]
     Active Substance: QUERCETIN
     Indication: Immune system disorder
     Route: 065
  11. VITAMIN K2 + D3 [Concomitant]
     Indication: Hypovitaminosis
     Dosage: 10000/45 MG DAILY
     Route: 065
  12. VITAMIN D3 [Concomitant]
     Active Substance: CHOLECALCIFEROL
     Indication: Hypovitaminosis
     Dosage: 10000 UNITS WEEKLY
     Route: 065

REACTIONS (5)
  - Hypoaesthesia [Not Recovered/Not Resolved]
  - Hypoaesthesia oral [Not Recovered/Not Resolved]
  - Paraesthesia oral [Recovered/Resolved]
  - Paraesthesia [Recovered/Resolved]
  - Drug ineffective [Unknown]

NARRATIVE: CASE EVENT DATE: 20240415
